FAERS Safety Report 10997593 (Version 1)
Quarter: 2015Q2

REPORT INFORMATION
  Report Type: Report from Study
  Country: US (occurrence: US)
  Receive Date: 20150408
  Receipt Date: 20150408
  Transmission Date: 20150821
  Serious: No
  Sender: FDA-Public Use
  Company Number: US-AMGEN-USASL2015032586

PATIENT
  Age: 51 Year
  Sex: Female

DRUGS (1)
  1. ENBREL [Suspect]
     Active Substance: ETANERCEPT
     Indication: RHEUMATOID ARTHRITIS
     Dosage: 50 MG, QWK
     Route: 058
     Dates: start: 201412

REACTIONS (6)
  - Sneezing [Unknown]
  - Nasal congestion [Unknown]
  - Dry skin [Not Recovered/Not Resolved]
  - Hypersensitivity [Unknown]
  - No therapeutic response [Unknown]
  - Cough [Unknown]

NARRATIVE: CASE EVENT DATE: 2015
